FAERS Safety Report 6151603-8 (Version None)
Quarter: 2009Q2

REPORT INFORMATION
  Report Type: 
  Country: None (occurrence: None)
  Receive Date: 20090410
  Receipt Date: 20090331
  Transmission Date: 20091009
  Serious: Yes (Other)
  Sender: FDA-Public Use
  Company Number: US-PFIZER INC-2008051520

PATIENT
  Sex: Female
  Weight: 70 kg

DRUGS (5)
  1. PROVERA [Suspect]
     Indication: HORMONE REPLACEMENT THERAPY
     Dosage: UNK
     Route: 048
     Dates: start: 19930501, end: 19960801
  2. PREMARIN [Suspect]
     Dosage: UNK
     Dates: start: 19930501, end: 19960801
  3. PREMPRO [Suspect]
     Indication: MENOPAUSE
     Dosage: UNK
     Dates: start: 19960901, end: 20020201
  4. PAXIL [Concomitant]
     Indication: ANXIETY
     Dosage: UNK
     Dates: start: 19940101
  5. PARAGESIC [Concomitant]
     Indication: PAIN
     Dosage: UNK
     Dates: start: 19940101

REACTIONS (1)
  - BREAST CANCER FEMALE [None]
